FAERS Safety Report 7320813-6 (Version None)
Quarter: 2011Q1

REPORT INFORMATION
  Report Type: 
  Country: None (occurrence: None)
  Receive Date: 20110228
  Receipt Date: 20110218
  Transmission Date: 20110831
  Serious: Yes (Death)
  Sender: FDA-Public Use
  Company Number: FR-ROCHE-759503

PATIENT
  Sex: Male

DRUGS (9)
  1. AVASTIN [Suspect]
     Indication: LUNG ADENOCARCINOMA
     Dosage: 4 CYLES
     Route: 065
     Dates: start: 20100816, end: 20101025
  2. PYOSTACINE [Concomitant]
     Indication: SUPERINFECTION
     Route: 048
     Dates: start: 20110118, end: 20110201
  3. DOCETAXEL [Suspect]
     Indication: LUNG ADENOCARCINOMA
     Dosage: 4 CYCLES
     Route: 042
     Dates: start: 20100816, end: 20101025
  4. DEPAKENE [Concomitant]
     Dosage: FREQUENCY: ONCE
     Route: 048
     Dates: start: 20091101, end: 20110201
  5. TRANEXAMIC ACID [Concomitant]
     Dosage: DOSAGE: 1 AMPOULES THRICE
     Route: 048
     Dates: start: 20110118, end: 20110201
  6. PROZAC [Concomitant]
     Dates: end: 20110201
  7. TRIFLUCAN [Concomitant]
     Indication: SUPERINFECTION
     Dosage: DOSE: 4 SPOONS
     Route: 048
     Dates: start: 20110118, end: 20110201
  8. INIPOMP [Concomitant]
     Route: 048
     Dates: end: 20110201
  9. SOLUPRED [Concomitant]
     Dates: start: 20110118, end: 20110201

REACTIONS (5)
  - PULMONARY NECROSIS [None]
  - SUPERINFECTION [None]
  - NECROSIS [None]
  - TUMOUR NECROSIS [None]
  - ANEURYSM RUPTURED [None]
